FAERS Safety Report 10955939 (Version 3)
Quarter: 2015Q2

REPORT INFORMATION
  Report Type: Spontaneous
  Country: GB (occurrence: GB)
  Receive Date: 20150326
  Receipt Date: 20150407
  Transmission Date: 20150821
  Serious: No
  Sender: FDA-Public Use
  Company Number: GB-SA-2015SA036705

PATIENT
  Age: 44 Year
  Sex: Female
  Weight: 61.69 kg

DRUGS (3)
  1. HUMALOG [Concomitant]
     Active Substance: INSULIN LISPRO
     Dosage: ON THE BASIS OF CARB COUNTS
     Route: 058
  2. CLIKSTAR [Concomitant]
     Active Substance: CLIKSTAR
  3. LANTUS [Suspect]
     Active Substance: INSULIN GLARGINE
     Indication: TYPE 1 DIABETES MELLITUS
     Route: 065

REACTIONS (1)
  - Hypoglycaemia [Recovered/Resolved]
